FAERS Safety Report 6567241-9 (Version None)
Quarter: 2010Q1

REPORT INFORMATION
  Report Type: 
  Country: None (occurrence: None)
  Receive Date: 20100128
  Receipt Date: 20100113
  Transmission Date: 20100710
  Serious: Yes (Other)
  Sender: FDA-Public Use
  Company Number: 2009AC000018

PATIENT
  Age: 69 Year
  Sex: Male

DRUGS (10)
  1. DIGOXIN [Suspect]
     Dosage: .125 MG;PO
     Route: 048
     Dates: start: 20050101
  2. SPIRIVA [Concomitant]
  3. ASPIRIN [Concomitant]
  4. VITAMIN B COMPLEX CAP [Concomitant]
  5. PLAVIX [Concomitant]
  6. CARVEDILOL [Concomitant]
  7. LISINOPRIL [Concomitant]
  8. ALBUTEROL [Concomitant]
  9. VENTOLIN [Concomitant]
  10. GLUCOSAMINE [Concomitant]

REACTIONS (20)
  - AORTIC ANEURYSM [None]
  - ARRHYTHMIA [None]
  - BREAST PAIN [None]
  - CARDIAC FAILURE CONGESTIVE [None]
  - CARDIOMYOPATHY [None]
  - CARPAL TUNNEL SYNDROME [None]
  - CHRONIC OBSTRUCTIVE PULMONARY DISEASE [None]
  - CORONARY ARTERY DISEASE [None]
  - COSTOCHONDRITIS [None]
  - ECONOMIC PROBLEM [None]
  - HEPATIC CYST [None]
  - HYPERLIPIDAEMIA [None]
  - HYPERTENSION [None]
  - HYPOTENSION [None]
  - MULTIPLE INJURIES [None]
  - MYOCARDIAL INFARCTION [None]
  - OSTEOARTHRITIS [None]
  - PNEUMONIA [None]
  - RENAL FAILURE CHRONIC [None]
  - UNEVALUABLE EVENT [None]
